FAERS Safety Report 5812568-9 (Version None)
Quarter: 2008Q3

REPORT INFORMATION
  Report Type: 
  Country: None (occurrence: None)
  Receive Date: 20080717
  Receipt Date: 20080707
  Transmission Date: 20090109
  Serious: Yes (Other)
  Sender: FDA-Public Use
  Company Number: US-ALLERGAN-0805995US

PATIENT
  Age: 74 Year
  Sex: Female

DRUGS (7)
  1. BOTOX [Suspect]
     Indication: TREMOR
     Dosage: 300 UNITS, SINGLE
     Route: 030
     Dates: start: 20080415, end: 20080415
  2. BOTOX [Suspect]
     Indication: DYSTONIA
     Dosage: 100 UNITS, UNK
     Dates: start: 20071001, end: 20071001
  3. BOTOX [Suspect]
     Dosage: 100 UNITS, SINGLE
     Dates: start: 20070621, end: 20070621
  4. LORAZEPAM [Concomitant]
     Indication: DRUG USE FOR UNKNOWN INDICATION
     Dosage: 0.5 MG, PRN
     Route: 048
  5. NEXIUM [Concomitant]
     Indication: DRUG USE FOR UNKNOWN INDICATION
     Dosage: 40 MG, QD
  6. AMLODIPINE [Concomitant]
     Indication: DRUG USE FOR UNKNOWN INDICATION
  7. ALLOPURINOL [Concomitant]
     Indication: DRUG USE FOR UNKNOWN INDICATION

REACTIONS (7)
  - ASTHENIA [None]
  - BALANCE DISORDER [None]
  - DIZZINESS [None]
  - DYSPHAGIA [None]
  - HEADACHE [None]
  - INFLUENZA LIKE ILLNESS [None]
  - LOCAL SWELLING [None]
